FAERS Safety Report 20569310 (Version 4)
Quarter: 2023Q1

REPORT INFORMATION
  Report Type: Spontaneous
  Country: JP (occurrence: JP)
  Receive Date: 20220308
  Receipt Date: 20230316
  Transmission Date: 20230418
  Serious: Yes (Other)
  Sender: FDA-Public Use
  Company Number: JP-BRISTOL-MYERS SQUIBB COMPANY-BMS-2021-121765

PATIENT
  Age: 89 Year
  Sex: Female
  Weight: 53 kg

DRUGS (2)
  1. YERVOY [Suspect]
     Active Substance: IPILIMUMAB
     Indication: Non-small cell lung cancer recurrent
     Route: 041
     Dates: start: 20210830, end: 20220713
  2. OPDIVO [Suspect]
     Active Substance: NIVOLUMAB
     Indication: Non-small cell lung cancer recurrent
     Dosage: 360 MG
     Route: 041
     Dates: start: 20210830, end: 20220713

REACTIONS (3)
  - Liver disorder [Recovered/Resolved]
  - Protein urine present [Not Recovered/Not Resolved]
  - Non-small cell lung cancer [Unknown]

NARRATIVE: CASE EVENT DATE: 20211011
